FAERS Safety Report 7781561-1 (Version None)
Quarter: 2011Q3

REPORT INFORMATION
  Report Type: 
  Country: None (occurrence: None)
  Receive Date: 20110927
  Receipt Date: 20110922
  Transmission Date: 20111222
  Serious: Yes (Hospitalization, Other)
  Sender: FDA-Public Use
  Company Number: HR-ABBOTT-11P-216-0857177-00

PATIENT
  Age: 29 Year
  Sex: Female
  Weight: 55 kg

DRUGS (1)
  1. HUMIRA [Suspect]
     Indication: CROHN'S DISEASE
     Dosage: 40MG/0.8ML MONTHLY
     Route: 058
     Dates: start: 20090301, end: 20090801

REACTIONS (4)
  - PYREXIA [None]
  - ABDOMINAL MASS [None]
  - ABDOMINAL PAIN [None]
  - ABSCESS INTESTINAL [None]
